FAERS Safety Report 9242407 (Version 1)
Quarter: 2013Q2

REPORT INFORMATION
  Report Type: Report from Study
  Country: VE (occurrence: VE)
  Receive Date: 20130419
  Receipt Date: 20130419
  Transmission Date: 20140414
  Serious: Yes (Other)
  Sender: FDA-Public Use
  Company Number: VE-ROCHE-1216216

PATIENT
  Age: 56 Year
  Sex: Female
  Weight: 55 kg

DRUGS (2)
  1. PEGASYS [Suspect]
     Indication: HEPATITIS C
     Route: 058
     Dates: start: 20120717, end: 20130318
  2. RIBAVIRIN [Suspect]
     Indication: HEPATITIS C
     Route: 048
     Dates: start: 20120717, end: 20130318

REACTIONS (4)
  - Alanine aminotransferase increased [Unknown]
  - Anaemia [Recovered/Resolved]
  - Alopecia [Recovered/Resolved]
  - Haemangioma of liver [Not Recovered/Not Resolved]
